FAERS Safety Report 9886296 (Version 5)
Quarter: 2014Q1

REPORT INFORMATION
  Report Type: Spontaneous
  Country: GB (occurrence: GB)
  Receive Date: 20140210
  Receipt Date: 20140324
  Transmission Date: 20141002
  Serious: Yes (Other)
  Sender: FDA-Public Use
  Company Number: GB-BRISTOL-MYERS SQUIBB COMPANY-19935022

PATIENT
  Age: 76 Year
  Sex: Male

DRUGS (11)
  1. YERVOY [Suspect]
     Indication: METASTATIC MALIGNANT MELANOMA
     Route: 042
     Dates: start: 20131018
  2. INFLIXIMAB [Suspect]
  3. CALCEOS [Concomitant]
  4. RANITIDINE [Concomitant]
  5. SANDO-K [Concomitant]
  6. PHOSPHATE-SANDOZ [Concomitant]
  7. LOPERAMIDE [Concomitant]
  8. SIMVASTATIN [Concomitant]
  9. PARACETAMOL [Concomitant]
  10. QUININE [Concomitant]
  11. ZOPICLONE [Concomitant]

REACTIONS (4)
  - Immune thrombocytopenic purpura [Not Recovered/Not Resolved]
  - Colitis [Recovering/Resolving]
  - Rectal haemorrhage [Unknown]
  - Clostridium difficile colitis [Recovered/Resolved]
